FAERS Safety Report 17183087 (Version 3)
Quarter: 2020Q2

REPORT INFORMATION
  Report Type: Report from Study
  Country: US (occurrence: US)
  Receive Date: 20191220
  Receipt Date: 20200403
  Transmission Date: 20200713
  Serious: No
  Sender: FDA-Public Use
  Company Number: NVSC2019US073372

PATIENT
  Age: 76 Year
  Sex: Female

DRUGS (1)
  1. BEOVU [Suspect]
     Active Substance: BROLUCIZUMAB-DBLL
     Indication: NEOVASCULAR AGE-RELATED MACULAR DEGENERATION
     Dosage: UNK UNK, QD
     Route: 047
     Dates: start: 20191211

REACTIONS (3)
  - Eye pruritus [Recovering/Resolving]
  - Eye pruritus [Recovered/Resolved]
  - Photopsia [Recovering/Resolving]

NARRATIVE: CASE EVENT DATE: 20191211
